FAERS Safety Report 8039057-8 (Version None)
Quarter: 2012Q1

REPORT INFORMATION
  Report Type: 
  Country: None (occurrence: None)
  Receive Date: 20120111
  Receipt Date: 20111212
  Transmission Date: 20120608
  Serious: No
  Sender: FDA-Public Use
  Company Number: US-AMGEN-USASP2011065977

PATIENT
  Age: 40 Year
  Sex: Female

DRUGS (1)
  1. ENBREL [Suspect]
     Indication: RHEUMATOID ARTHRITIS
     Dosage: 50 MG, QWK
     Dates: start: 20111130

REACTIONS (6)
  - DRUG INEFFECTIVE [None]
  - PAIN IN EXTREMITY [None]
  - HAND DEFORMITY [None]
  - ARTHRALGIA [None]
  - NECK PAIN [None]
  - OEDEMA PERIPHERAL [None]
